FAERS Safety Report 4891841-5 (Version None)
Quarter: 2006Q1

REPORT INFORMATION
  Report Type: 
  Country: None (occurrence: None)
  Receive Date: 20060124
  Receipt Date: 20060124
  Transmission Date: 20060701
  Serious: Yes (Other)
  Sender: FDA-Public Use
  Company Number: None

PATIENT
  Age: 66 Year
  Sex: Male
  Weight: 77.1115 kg

DRUGS (3)
  1. BEXTRA [Suspect]
     Indication: ARTHRITIS
     Dosage: 200 MG DAY PO
     Route: 048
     Dates: start: 20040830, end: 20041001
  2. BEXTRA [Suspect]
     Indication: INTERVERTEBRAL DISC DISORDER
     Dosage: 200 MG DAY PO
     Route: 048
     Dates: start: 20040830, end: 20041001
  3. BEXTRA [Suspect]
     Indication: NECK INJURY
     Dosage: 200 MG DAY PO
     Route: 048
     Dates: start: 20040830, end: 20041001

REACTIONS (4)
  - ARTHRITIS [None]
  - INTERVERTEBRAL DISC DISORDER [None]
  - NECK PAIN [None]
  - NERVE INJURY [None]
